FAERS Safety Report 20650127 (Version 4)
Quarter: 2022Q2

REPORT INFORMATION
  Report Type: Spontaneous
  Country: US (occurrence: US)
  Receive Date: 20220329
  Receipt Date: 20220609
  Transmission Date: 20220721
  Serious: Yes (Death)
  Sender: FDA-Public Use
  Company Number: US-AVEO ONCOLOGY-2022-AVEO-US000032

PATIENT

DRUGS (5)
  1. FOTIVDA [Suspect]
     Active Substance: TIVOZANIB HYDROCHLORIDE
     Indication: Renal cell carcinoma
     Dosage: 1.34 MG, DAILY FOR 21 DAYS THEN 7 DAYS OFF
     Route: 048
     Dates: start: 20220101
  2. FOTIVDA [Suspect]
     Active Substance: TIVOZANIB HYDROCHLORIDE
     Dosage: 1.34 MG, DAILY FOR 21 DAYS THEN 7 DAYS OFF
     Route: 048
     Dates: start: 20220101
  3. ALLOPURINOL [Concomitant]
     Active Substance: ALLOPURINOL
  4. OXYCODONE [Concomitant]
     Active Substance: OXYCODONE
  5. TYLENOL EXTRA STRENGTH [Concomitant]
     Active Substance: ACETAMINOPHEN

REACTIONS (8)
  - Renal cancer metastatic [Fatal]
  - Renal cell carcinoma [Fatal]
  - Dysphonia [Unknown]
  - Blood pressure increased [Unknown]
  - Confusional state [Recovering/Resolving]
  - Fungal foot infection [Unknown]
  - Nasopharyngitis [Unknown]
  - Therapy interrupted [Unknown]
